FAERS Safety Report 7223229-6 (Version None)
Quarter: 2011Q1

REPORT INFORMATION
  Report Type: 
  Country: None (occurrence: None)
  Receive Date: 20110112
  Receipt Date: 20100315
  Transmission Date: 20110831
  Serious: No
  Sender: FDA-Public Use
  Company Number: US-ALLERGAN-1003456US

PATIENT
  Age: 75 Year
  Sex: Male

DRUGS (5)
  1. REFRESH P.M. [Concomitant]
     Indication: DRY EYE
  2. XALATAN [Concomitant]
     Indication: GLAUCOMA
  3. RESTASIS [Suspect]
     Indication: DRY EYE
     Dosage: 2 GTT, BID
     Route: 047
  4. MURIEL [Concomitant]
     Indication: DRY EYE
  5. COSOPT [Concomitant]

REACTIONS (3)
  - VISION BLURRED [None]
  - INCORRECT DOSE ADMINISTERED [None]
  - EYE PAIN [None]
